FAERS Safety Report 18631271 (Version 2)
Quarter: 2021Q1

REPORT INFORMATION
  Report Type: Report from Study
  Country: None (occurrence: US)
  Receive Date: 20201218
  Receipt Date: 20210216
  Transmission Date: 20210419
  Serious: Yes (Hospitalization)
  Sender: FDA-Public Use
  Company Number: US-ABBVIE-20K-163-3697833-00

PATIENT
  Sex: Female
  Weight: 59.02 kg

DRUGS (2)
  1. HUMIRA [Suspect]
     Active Substance: ADALIMUMAB
     Indication: CROHN^S DISEASE
     Route: 058
  2. HUMIRA [Suspect]
     Active Substance: ADALIMUMAB
     Route: 058

REACTIONS (8)
  - Illness [Unknown]
  - Back pain [Unknown]
  - Back disorder [Unknown]
  - Pain [Unknown]
  - Intestinal obstruction [Unknown]
  - Feeling abnormal [Unknown]
  - Dysuria [Unknown]
  - Memory impairment [Unknown]
